FAERS Safety Report 22049961 (Version 1)
Quarter: 2023Q1

REPORT INFORMATION
  Report Type: Spontaneous
  Country: US (occurrence: None)
  Receive Date: 20230228
  Receipt Date: 20230228
  Transmission Date: 20230417
  Serious: Yes (Other)
  Sender: FDA-Public Use
  Company Number: None

PATIENT
  Age: 30 Year
  Sex: Female
  Weight: 106.59 kg

DRUGS (1)
  1. NEXPLANON [Suspect]
     Active Substance: ETONOGESTREL

REACTIONS (6)
  - Libido decreased [None]
  - Emotional disorder [None]
  - Amenorrhoea [None]
  - Depression [None]
  - Heavy menstrual bleeding [None]
  - Dyspareunia [None]

NARRATIVE: CASE EVENT DATE: 20211022
